FAERS Safety Report 21135970 (Version 5)
Quarter: 2022Q4

REPORT INFORMATION
  Report Type: Report from Study
  Country: US (occurrence: US)
  Receive Date: 20220727
  Receipt Date: 20221209
  Transmission Date: 20230113
  Serious: Yes (Hospitalization)
  Sender: FDA-Public Use
  Company Number: US-NOVARTISTESTPH-NVSC2022US169207

PATIENT
  Age: 8 Year
  Sex: Female

DRUGS (5)
  1. ILARIS [Suspect]
     Active Substance: CANAKINUMAB
     Indication: Still^s disease
     Dosage: 97 MG, (EVERY 4 WEEKS) OTHER
     Route: 058
  2. ILARIS [Suspect]
     Active Substance: CANAKINUMAB
     Dosage: 97 MG, OTHER, EVERY 28 DAYS
     Route: 058
  3. ILARIS [Suspect]
     Active Substance: CANAKINUMAB
     Dosage: 97 MG, QMO
     Route: 058
     Dates: start: 202207
  4. ILARIS [Suspect]
     Active Substance: CANAKINUMAB
     Dosage: 97 MG, OTHER (EVERY 4 WEEKS)
     Route: 058
     Dates: start: 20220701
  5. ILARIS [Suspect]
     Active Substance: CANAKINUMAB
     Dosage: 93 MG
     Route: 058
     Dates: start: 20221201

REACTIONS (6)
  - Condition aggravated [Unknown]
  - Pyrexia [Unknown]
  - Asthenia [Unknown]
  - Inappropriate schedule of product administration [Recovered/Resolved]
  - Inappropriate schedule of product administration [Unknown]
  - Incorrect dose administered [Unknown]

NARRATIVE: CASE EVENT DATE: 20220723
